FAERS Safety Report 6741265-0 (Version None)
Quarter: 2010Q2

REPORT INFORMATION
  Report Type: 
  Country: None (occurrence: None)
  Receive Date: 20100526
  Receipt Date: 20100512
  Transmission Date: 20101027
  Serious: No
  Sender: FDA-Public Use
  Company Number: US-JNJFOC-20100504967

PATIENT
  Sex: Female
  Weight: 45.36 kg

DRUGS (2)
  1. DURAGESIC-100 [Suspect]
     Indication: BONE DISORDER
     Route: 062
  2. DURAGESIC-100 [Suspect]
     Dosage: NDC: 50458-092-05
     Route: 062

REACTIONS (5)
  - DRUG ADMINISTERED AT INAPPROPRIATE SITE [None]
  - DRUG INEFFECTIVE [None]
  - PAIN [None]
  - TOOTH DISORDER [None]
  - WRONG TECHNIQUE IN DRUG USAGE PROCESS [None]
